FAERS Safety Report 24325922 (Version 1)
Quarter: 2024Q3

REPORT INFORMATION
  Report Type: Report from Study
  Country: DE (occurrence: DE)
  Receive Date: 20240917
  Receipt Date: 20240917
  Transmission Date: 20241016
  Serious: Yes (Hospitalization)
  Sender: ROCHE
  Company Number: DE-ML39632-2295682-0

PATIENT
  Age: 50 Year
  Sex: Female
  Weight: 55 kg

DRUGS (7)
  1. OCREVUS [Suspect]
     Active Substance: OCRELIZUMAB
     Indication: Relapsing multiple sclerosis
     Route: 042
     Dates: start: 20190205, end: 20190219
  2. OCREVUS [Suspect]
     Active Substance: OCRELIZUMAB
     Route: 042
     Dates: start: 20190813
  3. IBUPROFEN [Concomitant]
     Active Substance: IBUPROFEN
     Indication: Migraine
     Dosage: DEFINITION OF THE INTERVAL: AS REQUIRED
     Route: 048
  4. BACLOFEN [Concomitant]
     Active Substance: BACLOFEN
     Route: 048
     Dates: start: 201501
  5. NABIXIMOLS [Concomitant]
     Active Substance: NABIXIMOLS
     Dosage: DEFINITION OF THE INTERVAL: AS REQUIRED
     Route: 060
     Dates: start: 201410
  6. CITALOPRAM [Concomitant]
     Active Substance: CITALOPRAM\CITALOPRAM HYDROBROMIDE
     Route: 048
     Dates: start: 2012
  7. GABAPENTIN [Concomitant]
     Active Substance: GABAPENTIN
     Route: 048
     Dates: start: 201310

REACTIONS (4)
  - Cystitis noninfective [Not Recovered/Not Resolved]
  - Nephrectasia [Not Recovered/Not Resolved]
  - Bladder hypertrophy [Not Recovered/Not Resolved]
  - Thrombosis [Recovered/Resolved]

NARRATIVE: CASE EVENT DATE: 20240201
